FAERS Safety Report 22791503 (Version 47)
Quarter: 2024Q4

REPORT INFORMATION
  Report Type: Spontaneous
  Country: GB (occurrence: GB)
  Receive Date: 20230807
  Receipt Date: 20241211
  Transmission Date: 20250115
  Serious: Yes (Hospitalization, Other)
  Sender: JOHNSON AND JOHNSON
  Company Number: GB-SANDOZ-NVSC2023GB148009

PATIENT
  Age: 88 Year
  Sex: Female
  Weight: 88 kg

DRUGS (160)
  1. REMICADE [Suspect]
     Active Substance: INFLIXIMAB
     Indication: Product used for unknown indication
     Dosage: UNK
     Route: 042
  2. REMICADE [Suspect]
     Active Substance: INFLIXIMAB
     Indication: Colitis
     Dosage: UNK
     Route: 042
  3. REMICADE [Suspect]
     Active Substance: INFLIXIMAB
     Indication: Colitis
     Dosage: UNK
     Route: 042
  4. REMICADE [Suspect]
     Active Substance: INFLIXIMAB
     Dosage: UNK
     Route: 042
  5. REMICADE [Suspect]
     Active Substance: INFLIXIMAB
     Dosage: UNK
  6. REMICADE [Suspect]
     Active Substance: INFLIXIMAB
     Dosage: UNK
  7. REMICADE [Suspect]
     Active Substance: INFLIXIMAB
     Dosage: UNK
  8. REMICADE [Suspect]
     Active Substance: INFLIXIMAB
     Dosage: 10 MILLIGRAM/KILOGRAM, Q8WK
     Route: 042
  9. REMICADE [Suspect]
     Active Substance: INFLIXIMAB
     Dosage: 10 MILLIGRAM/KILOGRAM, EVERY 8 WEEK
     Route: 042
  10. REMICADE [Suspect]
     Active Substance: INFLIXIMAB
     Dosage: 10 MILLIGRAM/KILOGRAM, EVERY 8 WEEK
     Route: 042
  11. REMICADE [Suspect]
     Active Substance: INFLIXIMAB
     Dosage: 10 MILLIGRAM/KILOGRAM, EVERY 8 WEEK
     Route: 042
  12. REMICADE [Suspect]
     Active Substance: INFLIXIMAB
     Dosage: 10 MILLIGRAM/KILOGRAM, EVERY 8 WEEK
     Route: 042
  13. REMICADE [Suspect]
     Active Substance: INFLIXIMAB
     Dosage: UNK (INTRAVENOUS DRIP)
     Route: 042
  14. REMICADE [Suspect]
     Active Substance: INFLIXIMAB
     Dosage: UNK
     Route: 042
  15. REMICADE [Suspect]
     Active Substance: INFLIXIMAB
     Dosage: UNK (INTRAVENOUS DRIP)
     Route: 042
  16. REMICADE [Suspect]
     Active Substance: INFLIXIMAB
     Dosage: 10 MILLIGRAM/KILOGRAM, Q8WK
     Route: 042
  17. REMICADE [Suspect]
     Active Substance: INFLIXIMAB
     Dosage: 10 MILLIGRAM/KILOGRAM, Q8WK
     Route: 042
  18. REMICADE [Suspect]
     Active Substance: INFLIXIMAB
     Dosage: UNK
     Route: 042
  19. REMICADE [Suspect]
     Active Substance: INFLIXIMAB
     Dosage: UNK
     Route: 042
  20. REMICADE [Suspect]
     Active Substance: INFLIXIMAB
     Dosage: UNK
     Route: 042
  21. REMICADE [Suspect]
     Active Substance: INFLIXIMAB
     Dosage: UNK (INTRAVENOUS DRIP)
     Route: 042
  22. REMICADE [Suspect]
     Active Substance: INFLIXIMAB
     Dosage: UNK
     Route: 042
  23. REMICADE [Suspect]
     Active Substance: INFLIXIMAB
     Dosage: UNK
     Route: 042
  24. REMICADE [Suspect]
     Active Substance: INFLIXIMAB
     Dosage: UNK
     Route: 042
  25. REMICADE [Suspect]
     Active Substance: INFLIXIMAB
     Dosage: UNK
     Route: 042
     Dates: start: 20200407, end: 20230501
  26. ADALIMUMAB [Suspect]
     Active Substance: ADALIMUMAB
     Indication: Colitis
     Dosage: UNK
  27. ADALIMUMAB [Suspect]
     Active Substance: ADALIMUMAB
     Dosage: UNK
  28. ADALIMUMAB [Suspect]
     Active Substance: ADALIMUMAB
     Dosage: UNK
  29. ADALIMUMAB [Suspect]
     Active Substance: ADALIMUMAB
     Dosage: UNK
  30. ADALIMUMAB [Suspect]
     Active Substance: ADALIMUMAB
     Dosage: UNK
  31. ADALIMUMAB [Suspect]
     Active Substance: ADALIMUMAB
     Dosage: UNK
  32. ADALIMUMAB [Suspect]
     Active Substance: ADALIMUMAB
     Dosage: UNK
  33. ADALIMUMAB [Suspect]
     Active Substance: ADALIMUMAB
     Dosage: UNK
  34. ADALIMUMAB [Suspect]
     Active Substance: ADALIMUMAB
     Dosage: UNK
  35. ADALIMUMAB [Suspect]
     Active Substance: ADALIMUMAB
     Dosage: UNK
  36. ADALIMUMAB [Suspect]
     Active Substance: ADALIMUMAB
     Dosage: UNK
  37. ADALIMUMAB [Suspect]
     Active Substance: ADALIMUMAB
     Dosage: ADDITIONAL INFORMATION ON DRUG: DOSAGE1: UNIT=NOT AVAILABLE
  38. ADALIMUMAB [Suspect]
     Active Substance: ADALIMUMAB
     Dosage: UNK
  39. INFLIXIMAB [Suspect]
     Active Substance: INFLIXIMAB
     Indication: Colitis
     Dosage: 10 MILLIGRAM/KILOGRAM, Q8WK
  40. INFLIXIMAB [Suspect]
     Active Substance: INFLIXIMAB
     Indication: Colitis
     Dosage: 10 MG/KG. Q8W
  41. INFLIXIMAB [Suspect]
     Active Substance: INFLIXIMAB
     Dosage: 10 MG/KG. Q8W
  42. INFLIXIMAB [Suspect]
     Active Substance: INFLIXIMAB
     Dosage: UNK
  43. INFLIXIMAB [Suspect]
     Active Substance: INFLIXIMAB
     Dosage: UNK
  44. REMICADE [Suspect]
     Active Substance: INFLIXIMAB
     Indication: Product used for unknown indication
     Dosage: UNK, (INTRAVENOUS DRIP)
     Route: 042
  45. REMICADE [Suspect]
     Active Substance: INFLIXIMAB
     Dosage: UNK
     Route: 042
  46. INFLIXIMAB [Suspect]
     Active Substance: INFLIXIMAB
     Indication: Colitis
     Dosage: 10 MILLIGRAM/KILOGRAM (10 MG/KG (EVERY 8 WEEKS))/10 MILLIGRAM/KILOGRAM, CYCLICAL EVERY 8 WEEKS
     Dates: start: 20200407, end: 20230501
  47. INFLIXIMAB [Suspect]
     Active Substance: INFLIXIMAB
     Indication: Colitis
     Dosage: UNK
  48. INFLIXIMAB [Suspect]
     Active Substance: INFLIXIMAB
     Dosage: 10 MG/KG (EVERY 8 WEEKS)/10 MG/KG (EVERY 8 WEEKS), CYCLICAL
     Dates: start: 20200407, end: 20230501
  49. INFLIXIMAB [Suspect]
     Active Substance: INFLIXIMAB
     Dosage: 7 MG/KG, QW (10 MILLIGRAM/KILOGRAM, Q8WK) (CUMULATIVE DOSE: 1119MG/KG)/7 MILLIGRAM/KILOGRAM, QWK (10
     Dates: start: 20200407, end: 20230501
  50. INFLIXIMAB [Suspect]
     Active Substance: INFLIXIMAB
     Dosage: 7 MILLIGRAM/KILOGRAM (7 (MG/KG))
     Dates: start: 20200407, end: 20230501
  51. INFLIXIMAB [Suspect]
     Active Substance: INFLIXIMAB
     Dosage: 10 MG/KG (EVERY 8 WEEKS)
     Dates: start: 20200407, end: 20230501
  52. INFLIXIMAB [Suspect]
     Active Substance: INFLIXIMAB
     Dosage: 7 MG/KG / 7 MILLIGRAM/KILOGRAM
  53. INFLIXIMAB [Suspect]
     Active Substance: INFLIXIMAB
     Dosage: 10 MG/KG, Q8W (10 MILLIGRAM/KILOGRAM, Q8WK)/ CUMULATIVE DOSE 1119 MG/KG
     Dates: start: 20200407, end: 20230501
  54. INFLIXIMAB [Suspect]
     Active Substance: INFLIXIMAB
     Dosage: 199.821 MILLIGRAM/KILOGRAM (3 YEARS)/(CUMULATIVE DOSE TO FIRST REACTION: 1119 MG/KG)
  55. INFLIXIMAB [Suspect]
     Active Substance: INFLIXIMAB
     Dosage: 199.82 MILLIGRAM/KILOGRAM / 199.821 MILLIGRAM/KILOGRAM (3 YEARS)
  56. INFLIXIMAB [Suspect]
     Active Substance: INFLIXIMAB
     Dosage: 7 MG/KG (7 MILLIGRAM/KILOGRAM)/7 MILLIGRAM/KILOGRAM (199.82 MILLIGRAM/KILOGRAM (3 YEARS)
  57. INFLIXIMAB [Suspect]
     Active Substance: INFLIXIMAB
     Dosage: 7 MILLIGRAM/KILOGRAM, QW (CUMULATIVE DOSE TO FIRST REACTION: 199.821 MG/KG)
     Dates: start: 20200407, end: 20230501
  58. INFLIXIMAB [Suspect]
     Active Substance: INFLIXIMAB
     Dosage: 10 MG/KG, Q8W (10 MILLIGRAM/KILOGRAM, Q8WK)
     Dates: start: 20200407, end: 20230501
  59. INFLIXIMAB [Suspect]
     Active Substance: INFLIXIMAB
     Dosage: UNK
  60. INFLIXIMAB [Suspect]
     Active Substance: INFLIXIMAB
     Dosage: 7 MG/KG (7 MILLIGRAM/KILOGRAM)
  61. INFLIXIMAB [Suspect]
     Active Substance: INFLIXIMAB
     Dosage: 199.82 MILLIGRAM/KILOGRAM (3 YEARS)
  62. INFLIXIMAB [Suspect]
     Active Substance: INFLIXIMAB
     Dosage: UNK
  63. INFLIXIMAB [Suspect]
     Active Substance: INFLIXIMAB
     Dosage: 199.821 MILLIGRAM/KILOGRAM (3 YEARS)
     Route: 065
  64. INFLIXIMAB [Suspect]
     Active Substance: INFLIXIMAB
     Dosage: 7 MILLIGRAM/KILOGRAM (199.82 MILLIGRAM/KILOGRAM (3 YEARS)
     Route: 065
  65. INFLIXIMAB [Suspect]
     Active Substance: INFLIXIMAB
     Dosage: 7 MG/KG
     Route: 065
  66. INFLIXIMAB [Suspect]
     Active Substance: INFLIXIMAB
     Dosage: 7 MG/KG
     Route: 065
  67. INFLIXIMAB [Suspect]
     Active Substance: INFLIXIMAB
     Dosage: 7 MG/KG
     Route: 065
  68. INFLIXIMAB [Suspect]
     Active Substance: INFLIXIMAB
     Dosage: 7 MG/KG
     Route: 065
  69. INFLIXIMAB [Suspect]
     Active Substance: INFLIXIMAB
     Dosage: 7 MG/KG
     Route: 065
  70. INFLIXIMAB [Suspect]
     Active Substance: INFLIXIMAB
     Dosage: 7 MG/KG
     Route: 065
  71. INFLIXIMAB [Suspect]
     Active Substance: INFLIXIMAB
     Dosage: UNK
     Route: 065
  72. INFLIXIMAB [Suspect]
     Active Substance: INFLIXIMAB
     Dosage: UNK
     Route: 065
  73. INFLIXIMAB [Suspect]
     Active Substance: INFLIXIMAB
     Dosage: UNK
     Route: 065
  74. INFLIXIMAB [Suspect]
     Active Substance: INFLIXIMAB
     Dosage: 7 MG/KG
     Route: 065
  75. INFLIXIMAB [Suspect]
     Active Substance: INFLIXIMAB
     Dosage: 7 MILLIGRAM/KILOGRAM (199.82 MILLIGRAM/KILOGRAM / 199.821 MILLIGRAM/KILOGRAM (3 YEARS)
     Route: 065
  76. INFLIXIMAB [Suspect]
     Active Substance: INFLIXIMAB
     Dosage: 7 MILLIGRAM/KILOGRAM (199.821 MILLIGRAM/KILOGRAM (3 YEARS)/(CUMULATIVE DOSE TO FIRST REACTION: 1119
     Route: 065
  77. INFLIXIMAB [Suspect]
     Active Substance: INFLIXIMAB
     Dosage: 199.821 MILLIGRAM/KILOGRAM (3 YEARS)
     Route: 065
  78. METHOTREXATE SODIUM [Suspect]
     Active Substance: METHOTREXATE SODIUM
     Indication: Colitis
     Dosage: UNKNOWN
  79. METHOTREXATE SODIUM [Suspect]
     Active Substance: METHOTREXATE SODIUM
     Indication: Colitis
     Dosage: UNKNOWN
  80. METHOTREXATE SODIUM [Suspect]
     Active Substance: METHOTREXATE SODIUM
     Dosage: UNKNOWN
  81. METHOTREXATE SODIUM [Suspect]
     Active Substance: METHOTREXATE SODIUM
     Dosage: UNKNOWN
  82. METHOTREXATE SODIUM [Suspect]
     Active Substance: METHOTREXATE SODIUM
     Dosage: UNKNOWN
  83. METHOTREXATE SODIUM [Suspect]
     Active Substance: METHOTREXATE SODIUM
     Dosage: UNKNOWN
  84. METHOTREXATE SODIUM [Suspect]
     Active Substance: METHOTREXATE SODIUM
     Dosage: UNKNOWN
  85. METHOTREXATE SODIUM [Suspect]
     Active Substance: METHOTREXATE SODIUM
     Dosage: UNKNOWN
  86. METHOTREXATE SODIUM [Suspect]
     Active Substance: METHOTREXATE SODIUM
     Dosage: UNKNOWN
  87. METHOTREXATE SODIUM [Suspect]
     Active Substance: METHOTREXATE SODIUM
     Dosage: UNKNOWN
  88. METHOTREXATE SODIUM [Suspect]
     Active Substance: METHOTREXATE SODIUM
     Dosage: UNKNOWN
  89. METHOTREXATE SODIUM [Suspect]
     Active Substance: METHOTREXATE SODIUM
     Dosage: UNKNOWN
  90. METHOTREXATE SODIUM [Suspect]
     Active Substance: METHOTREXATE SODIUM
     Dosage: UNKNOWN
  91. METHOTREXATE SODIUM [Suspect]
     Active Substance: METHOTREXATE SODIUM
     Dosage: UNKNOWN
  92. METHOTREXATE SODIUM [Suspect]
     Active Substance: METHOTREXATE SODIUM
     Dosage: UNKNOWN
  93. METHOTREXATE SODIUM [Suspect]
     Active Substance: METHOTREXATE SODIUM
     Dosage: UNKNOWN
  94. METHOTREXATE SODIUM [Suspect]
     Active Substance: METHOTREXATE SODIUM
     Dosage: UNKNOWN
  95. METHOTREXATE SODIUM [Suspect]
     Active Substance: METHOTREXATE SODIUM
     Dosage: UNKNOWN
  96. METHOTREXATE SODIUM [Suspect]
     Active Substance: METHOTREXATE SODIUM
     Dosage: UNKNOWN
  97. METHOTREXATE SODIUM [Suspect]
     Active Substance: METHOTREXATE SODIUM
     Dosage: UNKNOWN
  98. METHOTREXATE SODIUM [Suspect]
     Active Substance: METHOTREXATE SODIUM
     Dosage: UNKNOWN
  99. METHOTREXATE SODIUM [Suspect]
     Active Substance: METHOTREXATE SODIUM
     Dosage: UNKNOWN
  100. METHOTREXATE SODIUM [Suspect]
     Active Substance: METHOTREXATE SODIUM
     Dosage: UNKNOWN
  101. METHOTREXATE SODIUM [Suspect]
     Active Substance: METHOTREXATE SODIUM
     Dosage: UNKNOWN
  102. METHOTREXATE SODIUM [Suspect]
     Active Substance: METHOTREXATE SODIUM
     Dosage: UNKNOWN
  103. METHOTREXATE SODIUM [Suspect]
     Active Substance: METHOTREXATE SODIUM
     Dosage: UNKNOWN
  104. METHOTREXATE SODIUM [Suspect]
     Active Substance: METHOTREXATE SODIUM
     Dosage: UNKNOWN
  105. METHOTREXATE SODIUM [Suspect]
     Active Substance: METHOTREXATE SODIUM
     Dosage: UNKNOWN
  106. METHOTREXATE SODIUM [Suspect]
     Active Substance: METHOTREXATE SODIUM
     Dosage: UNKNOWN
  107. METHOTREXATE SODIUM [Suspect]
     Active Substance: METHOTREXATE SODIUM
     Dosage: UNKNOWN
  108. METHOTREXATE SODIUM [Suspect]
     Active Substance: METHOTREXATE SODIUM
     Dosage: UNKNOWN
  109. METHOTREXATE SODIUM [Suspect]
     Active Substance: METHOTREXATE SODIUM
     Dosage: UNKNOWN
  110. METHOTREXATE SODIUM [Suspect]
     Active Substance: METHOTREXATE SODIUM
     Dosage: UNKNOWN
  111. METHOTREXATE SODIUM [Suspect]
     Active Substance: METHOTREXATE SODIUM
     Dosage: UNKNOWN
  112. METHOTREXATE SODIUM [Suspect]
     Active Substance: METHOTREXATE SODIUM
     Dosage: UNKNOWN
  113. METHOTREXATE SODIUM [Suspect]
     Active Substance: METHOTREXATE SODIUM
     Dosage: UNKNOWN
  114. METHOTREXATE SODIUM [Suspect]
     Active Substance: METHOTREXATE SODIUM
     Dosage: UNKNOWN
  115. METHOTREXATE SODIUM [Suspect]
     Active Substance: METHOTREXATE SODIUM
     Dosage: UNKNOWN
  116. METHOTREXATE SODIUM [Suspect]
     Active Substance: METHOTREXATE SODIUM
     Dosage: UNKNOWN
  117. METHOTREXATE SODIUM [Suspect]
     Active Substance: METHOTREXATE SODIUM
     Dosage: UNKNOWN
  118. METHOTREXATE SODIUM [Suspect]
     Active Substance: METHOTREXATE SODIUM
     Dosage: UNKNOWN
  119. METHOTREXATE SODIUM [Suspect]
     Active Substance: METHOTREXATE SODIUM
     Dosage: UNKNOWN
  120. METHOTREXATE SODIUM [Suspect]
     Active Substance: METHOTREXATE SODIUM
     Dosage: UNKNOWN
  121. METHOTREXATE SODIUM [Suspect]
     Active Substance: METHOTREXATE SODIUM
     Dosage: UNKNOWN
  122. METHOTREXATE SODIUM [Suspect]
     Active Substance: METHOTREXATE SODIUM
     Dosage: UNKNOWN
  123. METHOTREXATE SODIUM [Suspect]
     Active Substance: METHOTREXATE SODIUM
     Dosage: UNKNOWN
  124. METHOTREXATE SODIUM [Suspect]
     Active Substance: METHOTREXATE SODIUM
     Dosage: UNKNOWN
  125. METHOTREXATE SODIUM [Suspect]
     Active Substance: METHOTREXATE SODIUM
     Dosage: UNKNOWN
  126. METHOTREXATE [Suspect]
     Active Substance: METHOTREXATE
     Indication: Colitis
     Dosage: UNK
  127. METHOTREXATE [Suspect]
     Active Substance: METHOTREXATE
     Indication: Colitis
     Dosage: UNK
     Route: 065
  128. METHOTREXATE [Concomitant]
     Active Substance: METHOTREXATE
     Indication: Colitis
     Dosage: UNK
  129. METHOTREXATE [Concomitant]
     Active Substance: METHOTREXATE
     Indication: Colitis
     Dosage: UNK
  130. METHOTREXATE [Concomitant]
     Active Substance: METHOTREXATE
     Dosage: UNK
  131. METHOTREXATE [Concomitant]
     Active Substance: METHOTREXATE
     Dosage: UNK
  132. METHOTREXATE [Concomitant]
     Active Substance: METHOTREXATE
     Dosage: UNK
  133. METHOTREXATE [Concomitant]
     Active Substance: METHOTREXATE
     Dosage: UNK
  134. METHOTREXATE [Concomitant]
     Active Substance: METHOTREXATE
     Dosage: UNK
  135. METHOTREXATE [Concomitant]
     Active Substance: METHOTREXATE
     Dosage: UNK (UNK ROUTE OF ADMIN (FREE TEXT): INTRAVENOUS DRIP)
  136. METHOTREXATE [Concomitant]
     Active Substance: METHOTREXATE
     Dosage: UNK
  137. METHOTREXATE [Concomitant]
     Active Substance: METHOTREXATE
     Dosage: UNK
  138. METHOTREXATE [Concomitant]
     Active Substance: METHOTREXATE
     Dosage: UNK
  139. METHOTREXATE [Concomitant]
     Active Substance: METHOTREXATE
     Dosage: UNK
  140. METHOTREXATE [Concomitant]
     Active Substance: METHOTREXATE
     Dosage: UNK
  141. METHOTREXATE [Concomitant]
     Active Substance: METHOTREXATE
     Dosage: UNK
  142. METHOTREXATE [Concomitant]
     Active Substance: METHOTREXATE
     Dosage: UNK
  143. METHOTREXATE [Concomitant]
     Active Substance: METHOTREXATE
     Dosage: UNK
  144. METHOTREXATE [Concomitant]
     Active Substance: METHOTREXATE
     Dosage: UNK
  145. METHOTREXATE [Concomitant]
     Active Substance: METHOTREXATE
     Dosage: UNK
  146. METHOTREXATE [Concomitant]
     Active Substance: METHOTREXATE
     Dosage: UNK
  147. METHOTREXATE [Concomitant]
     Active Substance: METHOTREXATE
     Dosage: UNK
  148. METHOTREXATE [Concomitant]
     Active Substance: METHOTREXATE
     Dosage: UNK
  149. METHOTREXATE [Concomitant]
     Active Substance: METHOTREXATE
     Dosage: UNK
  150. METHOTREXATE [Concomitant]
     Active Substance: METHOTREXATE
     Dosage: UNK
  151. METHOTREXATE [Concomitant]
     Active Substance: METHOTREXATE
     Dosage: UNK
  152. METHOTREXATE [Concomitant]
     Active Substance: METHOTREXATE
     Dosage: UNK
  153. METHOTREXATE [Concomitant]
     Active Substance: METHOTREXATE
     Dosage: UNK
  154. METHOTREXATE [Concomitant]
     Active Substance: METHOTREXATE
     Dosage: UNK
  155. METHOTREXATE [Concomitant]
     Active Substance: METHOTREXATE
     Dosage: UNK
  156. METHOTREXATE [Concomitant]
     Active Substance: METHOTREXATE
     Dosage: UNK
  157. METHOTREXATE [Concomitant]
     Active Substance: METHOTREXATE
     Dosage: UNK
  158. METHOTREXATE [Concomitant]
     Active Substance: METHOTREXATE
     Dosage: UNK
  159. METHOTREXATE [Concomitant]
     Active Substance: METHOTREXATE
     Dosage: UNK
  160. METHOTREXATE [Concomitant]
     Active Substance: METHOTREXATE
     Dosage: UNK

REACTIONS (6)
  - Arthritis bacterial [Recovering/Resolving]
  - Streptococcal sepsis [Recovering/Resolving]
  - Sepsis [Recovering/Resolving]
  - Streptococcal infection [Recovering/Resolving]
  - Overdose [Unknown]
  - Product use in unapproved indication [Unknown]

NARRATIVE: CASE EVENT DATE: 20230501
